FAERS Safety Report 14099894 (Version 1)
Quarter: 2017Q4

REPORT INFORMATION
  Report Type: Spontaneous
  Country: RU (occurrence: RU)
  Receive Date: 20171017
  Receipt Date: 20171017
  Transmission Date: 20180321
  Serious: Yes (Other)
  Sender: FDA-Public Use
  Company Number: RU-ASTRAZENECA-2017SF05737

PATIENT
  Age: 57 Year
  Sex: Female
  Weight: 76 kg

DRUGS (7)
  1. VEROSPIRON [Concomitant]
     Active Substance: SPIRONOLACTONE
  2. BISOPROLOL [Concomitant]
     Active Substance: BISOPROLOL
  3. BRILINTA [Suspect]
     Active Substance: TICAGRELOR
     Indication: MYOCARDIAL INFARCTION
     Route: 048
     Dates: start: 201609
  4. AMLODIPINE [Concomitant]
     Active Substance: AMLODIPINE BESYLATE
  5. ATORVASTATIN [Concomitant]
     Active Substance: ATORVASTATIN
  6. BRILINTA [Suspect]
     Active Substance: TICAGRELOR
     Indication: STENT PLACEMENT
     Route: 048
     Dates: start: 201609
  7. ACECARDOL [Concomitant]
     Active Substance: ASPIRIN

REACTIONS (3)
  - Vascular stent occlusion [Unknown]
  - Intentional product use issue [Not Recovered/Not Resolved]
  - Off label use [Not Recovered/Not Resolved]
